FAERS Safety Report 5828549-5 (Version None)
Quarter: 2008Q3

REPORT INFORMATION
  Report Type: 
  Country: None (occurrence: None)
  Receive Date: 20080731
  Receipt Date: 20080724
  Transmission Date: 20090109
  Serious: Yes (Hospitalization)
  Sender: FDA-Public Use
  Company Number: DE-JNJFOC-20080702990

PATIENT
  Sex: Female
  Weight: 65 kg

DRUGS (2)
  1. DURAGESIC-100 [Suspect]
     Indication: SUICIDE ATTEMPT
     Dosage: 2X75UG/HR
     Route: 062
  2. PERNAZINUM [Suspect]
     Indication: DRUG USE FOR UNKNOWN INDICATION
     Route: 048

REACTIONS (5)
  - FATIGUE [None]
  - HYPOTENSION [None]
  - INTENTIONAL OVERDOSE [None]
  - SUICIDE ATTEMPT [None]
  - VOMITING [None]
